FAERS Safety Report 5821011-5 (Version None)
Quarter: 2008Q3

REPORT INFORMATION
  Report Type: 
  Country: None (occurrence: None)
  Receive Date: 20080724
  Receipt Date: 20080714
  Transmission Date: 20090109
  Serious: Yes (Hospitalization, Other)
  Sender: FDA-Public Use
  Company Number: SE-NOVOPROD-277532

PATIENT
  Age: 9 Year
  Sex: Male

DRUGS (2)
  1. NORDITROPIN [Suspect]
     Indication: SMALL FOR DATES BABY
     Dosage: 50 UG, UNK
     Dates: start: 20060101, end: 20080222
  2. LEVOTHYROXINE SODIUM [Concomitant]
     Dosage: 50 MEQ, QD

REACTIONS (2)
  - HYPOTHYROIDISM [None]
  - NEPHRITIS AUTOIMMUNE [None]
